FAERS Safety Report 7868289-4 (Version None)
Quarter: 2011Q4

REPORT INFORMATION
  Report Type: 
  Country: None (occurrence: None)
  Receive Date: 20111028
  Receipt Date: 20110106
  Transmission Date: 20120403
  Serious: Yes (Hospitalization)
  Sender: FDA-Public Use
  Company Number: US-AMGEN-USASP2010007025

PATIENT
  Age: 19 Year
  Sex: Female

DRUGS (1)
  1. ENBREL [Suspect]
     Indication: RHEUMATOID ARTHRITIS
     Dates: start: 20080501

REACTIONS (5)
  - RED BLOOD CELL COUNT DECREASED [None]
  - FATIGUE [None]
  - PALLOR [None]
  - VAGINAL HAEMORRHAGE [None]
  - WEIGHT DECREASED [None]
